FAERS Safety Report 8522029-4 (Version None)
Quarter: 2012Q3

REPORT INFORMATION
  Report Type: 
  Country: None (occurrence: None)
  Receive Date: 20120719
  Receipt Date: 20120717
  Transmission Date: 20120928
  Serious: Yes (Hospitalization, Other)
  Sender: FDA-Public Use
  Company Number: US-PURDUE-USA-2012-0089837

PATIENT
  Sex: Male

DRUGS (7)
  1. SOMA [Suspect]
     Indication: PRODUCT USED FOR UNKNOWN INDICATION
     Dosage: 80 MG, TID
  2. PRAVACHOL [Concomitant]
     Indication: PRODUCT USED FOR UNKNOWN INDICATION
     Dosage: UNK, SEE TEXT
  3. REQUIP [Concomitant]
     Indication: PRODUCT USED FOR UNKNOWN INDICATION
     Dosage: 2 MG, DAILY
  4. OXYCONTIN [Suspect]
     Indication: BACK PAIN
     Dosage: UNK, SEE TEXT
  5. OXYCODONE HCL [Suspect]
     Indication: BREAKTHROUGH PAIN
     Dosage: UNK, SEE TEXT
  6. KLONOPIN [Suspect]
     Indication: ANXIETY DISORDER
     Dosage: UNK, SEE TEXT
  7. PROZAC [Concomitant]
     Indication: DEPRESSION
     Dosage: UNK, SEE TEXT

REACTIONS (9)
  - PANIC ATTACK [None]
  - PAIN [None]
  - RESTLESS LEGS SYNDROME [None]
  - ALCOHOL ABUSE [None]
  - FIBROMYALGIA [None]
  - INTENTIONAL OVERDOSE [None]
  - NECK SURGERY [None]
  - ACCIDENTAL OVERDOSE [None]
  - BLOOD CHOLESTEROL INCREASED [None]
